FAERS Safety Report 5725986-4 (Version None)
Quarter: 2008Q2

REPORT INFORMATION
  Report Type: 
  Country: None (occurrence: None)
  Receive Date: 20080501
  Receipt Date: 20080501
  Transmission Date: 20081010
  Serious: Yes (Life-Threatening, Hospitalization, Disabling)
  Sender: FDA-Public Use
  Company Number: None

PATIENT
  Age: 80 Year
  Sex: Female
  Weight: 81.6475 kg

DRUGS (4)
  1. LYRICA [Suspect]
     Indication: NEURALGIA
     Dosage: PO BID
     Route: 048
     Dates: start: 20080404
  2. LYRICA [Suspect]
     Indication: SPINAL COLUMN STENOSIS
     Dosage: PO BID
     Route: 048
     Dates: start: 20080404
  3. LYRICA [Suspect]
     Indication: NEURALGIA
     Dosage: PO BID
     Route: 048
     Dates: start: 20080406
  4. LYRICA [Suspect]
     Indication: SPINAL COLUMN STENOSIS
     Dosage: PO BID
     Route: 048
     Dates: start: 20080406

REACTIONS (3)
  - ATRIOVENTRICULAR BLOCK SECOND DEGREE [None]
  - BRADYCARDIA [None]
  - CARDIO-RESPIRATORY ARREST [None]
